FAERS Safety Report 9090790 (Version 1)
Quarter: 2013Q1

REPORT INFORMATION
  Report Type: Spontaneous
  Country: GB (occurrence: GB)
  Receive Date: 20130201
  Receipt Date: 20130201
  Transmission Date: 20140127
  Serious: Yes (Other)
  Sender: FDA-Public Use
  Company Number: GB-TEVA-382463ISR

PATIENT
  Sex: Female

DRUGS (4)
  1. ATENOLOL [Suspect]
     Indication: HIP ARTHROPLASTY
     Dates: start: 2008, end: 200811
  2. INDERAL LA [Concomitant]
  3. INDERAL LA [Concomitant]
  4. IBUPROFEN [Concomitant]

REACTIONS (7)
  - Decreased activity [Not Recovered/Not Resolved]
  - Headache [Not Recovered/Not Resolved]
  - Malaise [Recovered/Resolved]
  - Head discomfort [Not Recovered/Not Resolved]
  - Alopecia [Recovering/Resolving]
  - Insomnia [Recovering/Resolving]
  - Feeling abnormal [Recovering/Resolving]
